FAERS Safety Report 9014484 (Version 3)
Quarter: 2013Q4

REPORT INFORMATION
  Report Type: Spontaneous
  Country: JP (occurrence: JP)
  Receive Date: 20130115
  Receipt Date: 20131030
  Transmission Date: 20140711
  Serious: Yes (Other)
  Sender: FDA-Public Use
  Company Number: JP-GLAXOSMITHKLINE-B0858119A

PATIENT
  Sex: Female

DRUGS (5)
  1. FLOLAN [Suspect]
     Indication: PULMONARY HYPERTENSION
     Route: 042
     Dates: start: 20070224, end: 20100524
  2. TRACLEER [Concomitant]
     Dosage: 4IUAX TWICE PER DAY
     Route: 048
     Dates: start: 20060501
  3. WARFARIN [Concomitant]
     Route: 048
     Dates: start: 200602
  4. DEPAS [Concomitant]
     Indication: INSOMNIA
     Route: 048
  5. PROCYLIN [Concomitant]
     Dosage: 3IUAX THREE TIMES PER DAY
     Route: 048
     Dates: start: 200601, end: 20070411

REACTIONS (2)
  - Otitis media [Recovering/Resolving]
  - Deafness [Unknown]
